FAERS Safety Report 11357801 (Version 1)
Quarter: 2015Q3

REPORT INFORMATION
  Report Type: Spontaneous
  Country: US (occurrence: US)
  Receive Date: 20150803
  Receipt Date: 20150803
  Transmission Date: 20151125
  Serious: No
  Sender: FDA-Public Use
  Company Number: US-ELI_LILLY_AND_COMPANY-US201012005707

PATIENT
  Age: 29 Year
  Sex: Male

DRUGS (1)
  1. STRATTERA [Suspect]
     Active Substance: ATOMOXETINE HYDROCHLORIDE
     Indication: ATTENTION DEFICIT/HYPERACTIVITY DISORDER
     Dosage: 40 MG, DAILY (1/D)
     Dates: start: 20101214

REACTIONS (6)
  - Fatigue [Unknown]
  - Frustration [Unknown]
  - Constipation [Unknown]
  - Depression [Unknown]
  - Insomnia [Unknown]
  - Irritability [Unknown]

NARRATIVE: CASE EVENT DATE: 20101214
